FAERS Safety Report 20889992 (Version 9)
Quarter: 2024Q1

REPORT INFORMATION
  Report Type: Spontaneous
  Country: US (occurrence: US)
  Receive Date: 20220530
  Receipt Date: 20240318
  Transmission Date: 20240410
  Serious: Yes (Disabling)
  Sender: FDA-Public Use
  Company Number: US-PFIZER INC-202200752689

PATIENT
  Age: 49 Year
  Sex: Female

DRUGS (2)
  1. PREMARIN [Suspect]
     Active Substance: ESTROGENS, CONJUGATED
     Indication: Atrophic vulvovaginitis
     Dosage: 1 G, 2X/WEEK (MON AND THU)
     Route: 067
     Dates: start: 20220503
  2. PREMARIN [Suspect]
     Active Substance: ESTROGENS, CONJUGATED
     Dosage: 1 G, 2X/WEEK (MON AND THURS)
     Route: 067
     Dates: start: 20221221

REACTIONS (4)
  - Pain [Unknown]
  - Osteoporosis [Unknown]
  - Headache [Unknown]
  - Product prescribing error [Unknown]
